FAERS Safety Report 25213390 (Version 1)
Quarter: 2025Q2

REPORT INFORMATION
  Report Type: Spontaneous
  Country: US (occurrence: US)
  Receive Date: 20250418
  Receipt Date: 20250418
  Transmission Date: 20250716
  Serious: Yes (Death, Hospitalization)
  Sender: MYLAN
  Company Number: US-MYLANLABS-2025M1033702

PATIENT
  Age: 8 Decade
  Sex: Female

DRUGS (18)
  1. DOXORUBICIN HYDROCHLORIDE [Suspect]
     Active Substance: DOXORUBICIN HYDROCHLORIDE
     Indication: Hormone receptor positive HER2 negative breast cancer
     Dosage: 60 MILLIGRAM/SQ. METER, Q3W
  2. DOXORUBICIN HYDROCHLORIDE [Suspect]
     Active Substance: DOXORUBICIN HYDROCHLORIDE
     Indication: ROS1 gene rearrangement
  3. DOXORUBICIN HYDROCHLORIDE [Suspect]
     Active Substance: DOXORUBICIN HYDROCHLORIDE
     Indication: Breast cancer metastatic
  4. FULVESTRANT [Suspect]
     Active Substance: FULVESTRANT
     Indication: Hormone receptor positive HER2 negative breast cancer
  5. FULVESTRANT [Suspect]
     Active Substance: FULVESTRANT
     Indication: Breast cancer metastatic
     Dosage: UNK UNK, MONTHLY
  6. PALBOCICLIB [Suspect]
     Active Substance: PALBOCICLIB
     Indication: Hormone receptor positive HER2 negative breast cancer
  7. PALBOCICLIB [Suspect]
     Active Substance: PALBOCICLIB
     Indication: Breast cancer metastatic
  8. CERITINIB [Suspect]
     Active Substance: CERITINIB
     Indication: Hormone receptor positive HER2 negative breast cancer
  9. CERITINIB [Suspect]
     Active Substance: CERITINIB
     Indication: ROS1 gene rearrangement
  10. CERITINIB [Suspect]
     Active Substance: CERITINIB
     Indication: Breast cancer metastatic
  11. PACLITAXEL [Suspect]
     Active Substance: PACLITAXEL
     Indication: Hormone receptor positive HER2 negative breast cancer
     Dosage: 80 MILLIGRAM/SQ. METER, QW
  12. PACLITAXEL [Suspect]
     Active Substance: PACLITAXEL
     Indication: ROS1 gene rearrangement
  13. PACLITAXEL [Suspect]
     Active Substance: PACLITAXEL
     Indication: Breast cancer metastatic
  14. ABEMACICLIB [Suspect]
     Active Substance: ABEMACICLIB
     Indication: Hormone receptor positive HER2 negative breast cancer
     Dosage: 150 MILLIGRAM, BID
  15. ABEMACICLIB [Suspect]
     Active Substance: ABEMACICLIB
     Indication: Breast cancer metastatic
  16. CABOZANTINIB [Suspect]
     Active Substance: CABOZANTINIB
     Indication: Hormone receptor positive HER2 negative breast cancer
     Dosage: 60 MILLIGRAM, QD
  17. CABOZANTINIB [Suspect]
     Active Substance: CABOZANTINIB
     Indication: ROS1 gene rearrangement
     Dosage: 40 MILLIGRAM, QD
  18. CABOZANTINIB [Suspect]
     Active Substance: CABOZANTINIB
     Indication: Breast cancer metastatic
     Dosage: 20 MILLIGRAM, QD

REACTIONS (2)
  - Drug ineffective [Fatal]
  - Disease progression [Fatal]
